FAERS Safety Report 25890759 (Version 1)
Quarter: 2025Q4

REPORT INFORMATION
  Report Type: Spontaneous
  Country: US (occurrence: US)
  Receive Date: 20251007
  Receipt Date: 20251007
  Transmission Date: 20260119
  Serious: No
  Sender: FERRING
  Company Number: US-FERRINGPH-2025FE03085

PATIENT
  Sex: Male

DRUGS (2)
  1. ADSTILADRIN [Suspect]
     Active Substance: NADOFARAGENE FIRADENOVEC-VNCG
     Indication: Bladder cancer
     Dosage: 75 ML, EVERY 3RD MONTH
     Route: 043
     Dates: start: 20250304
  2. ADSTILADRIN [Suspect]
     Active Substance: NADOFARAGENE FIRADENOVEC-VNCG
     Indication: Bladder cancer

REACTIONS (4)
  - Fatigue [Recovered/Resolved]
  - Fatigue [Recovered/Resolved]
  - Fatigue [Not Recovered/Not Resolved]
  - Blood urine present [Recovered/Resolved]

NARRATIVE: CASE EVENT DATE: 20250101
